FAERS Safety Report 13668800 (Version 1)
Quarter: 2017Q2

REPORT INFORMATION
  Report Type: Spontaneous
  Country: JP (occurrence: JP)
  Receive Date: 20170620
  Receipt Date: 20170620
  Transmission Date: 20170830
  Serious: Yes (Death, Other)
  Sender: FDA-Public Use
  Company Number: JP-PFIZER INC-2017261305

PATIENT
  Age: 87 Year
  Sex: Female

DRUGS (9)
  1. AMPHOTERICIN B. [Suspect]
     Active Substance: AMPHOTERICIN B
     Indication: FUNGAEMIA
  2. PREDNISOLONE. [Concomitant]
     Active Substance: PREDNISOLONE
     Indication: BEHCET^S SYNDROME
     Dosage: 10 MG, DAILY
     Route: 048
  3. FLUCONAZOLE. [Suspect]
     Active Substance: FLUCONAZOLE
     Dosage: 100 MG, DAILY
  4. AMPHOTERICIN B. [Suspect]
     Active Substance: AMPHOTERICIN B
     Indication: CRYPTOCOCCOSIS
     Dosage: 3.5 MG/KG, DAILY
  5. CEFAZOLIN [Concomitant]
     Active Substance: CEFAZOLIN
     Indication: CELLULITIS
     Route: 041
  6. FLUCYTOSINE. [Suspect]
     Active Substance: FLUCYTOSINE
     Indication: FUNGAEMIA
  7. FLUCONAZOLE. [Suspect]
     Active Substance: FLUCONAZOLE
     Dosage: 200 MG, DAILY
  8. FLUCYTOSINE. [Suspect]
     Active Substance: FLUCYTOSINE
     Indication: CRYPTOCOCCOSIS
     Dosage: 25 MG/KG, DAILY
  9. MEROPENEM. [Concomitant]
     Active Substance: MEROPENEM

REACTIONS (2)
  - General physical health deterioration [Fatal]
  - Renal impairment [Unknown]
